FAERS Safety Report 24269853 (Version 1)
Quarter: 2024Q3

REPORT INFORMATION
  Report Type: Spontaneous
  Country: US (occurrence: None)
  Receive Date: 20240830
  Receipt Date: 20240830
  Transmission Date: 20241017
  Serious: Yes (Hospitalization)
  Sender: Public
  Company Number: None

PATIENT
  Age: 6 Year
  Sex: Male

DRUGS (1)
  1. KANUMA [Suspect]
     Active Substance: SEBELIPASE ALFA
     Indication: Lipid metabolism disorder
     Dosage: 60MG WEEKLY INTRAVENOUSLY
     Route: 042
     Dates: start: 202305

REACTIONS (3)
  - Pyrexia [None]
  - Blood culture positive [None]
  - Intentional dose omission [None]

NARRATIVE: CASE EVENT DATE: 20240819
